FAERS Safety Report 14321428 (Version 3)
Quarter: 2018Q1

REPORT INFORMATION
  Report Type: Spontaneous
  Country: DE (occurrence: DE)
  Receive Date: 20171223
  Receipt Date: 20180222
  Transmission Date: 20180509
  Serious: Yes (Death, Hospitalization)
  Sender: FDA-Public Use
  Company Number: DE-TEVA-2017-DE-834920

PATIENT
  Age: 72 Year
  Sex: Male
  Weight: 85 kg

DRUGS (8)
  1. VALSARTAN. [Concomitant]
     Active Substance: VALSARTAN
     Dosage: FOR  STABILIZATION OF AORTA
  2. CLOPIDOGREL [Concomitant]
     Active Substance: CLOPIDOGREL BISULFATE
     Dosage: FOR  STABILIZATION OF AORTA
  3. MUCOCLEAR 6% [Concomitant]
     Dates: start: 20171026
  4. SYMBICORT [Concomitant]
     Active Substance: BUDESONIDE\FORMOTEROL FUMARATE DIHYDRATE
     Dates: start: 20170926
  5. CEFUROXIM 500 [Concomitant]
     Dates: start: 20170921
  6. LEVOFLOXACIN-RATIOPHARM 500 MG FILMTABLETTEN [Suspect]
     Active Substance: LEVOFLOXACIN
     Indication: COUGH
     Dosage: 500 MILLIGRAM DAILY;
     Dates: start: 20171026, end: 20171029
  7. BISOPROLOL [Concomitant]
     Active Substance: BISOPROLOL
     Dosage: FOR  STABILIZATION OF AORTA
  8. PARACODIN [Concomitant]
     Active Substance: DIHYDROCODEINE BITARTRATE
     Dates: start: 20170921

REACTIONS (6)
  - Palatal palsy [Fatal]
  - Dyspnoea [Not Recovered/Not Resolved]
  - Gingival swelling [Not Recovered/Not Resolved]
  - Respiratory distress [Unknown]
  - Swelling face [Not Recovered/Not Resolved]
  - Swollen tongue [Not Recovered/Not Resolved]

NARRATIVE: CASE EVENT DATE: 20171029
